FAERS Safety Report 5491415-1 (Version None)
Quarter: 2007Q4

REPORT INFORMATION
  Report Type: 
  Country: None (occurrence: None)
  Receive Date: 20071018
  Receipt Date: 20071015
  Transmission Date: 20080405
  Serious: Yes (Other)
  Sender: FDA-Public Use
  Company Number: 2006S1000227

PATIENT
  Age: 12 Day
  Sex: Female
  Weight: 0.91 kg

DRUGS (5)
  1. NITRIC OXIDE [Suspect]
     Indication: LUNG DISORDER
     Dosage: 5 PPM;CONT;INH
     Route: 055
     Dates: start: 20061101, end: 20061120
  2. NITRIC OXIDE [Suspect]
     Indication: PROPHYLAXIS
     Dosage: 5 PPM;CONT;INH
     Route: 055
     Dates: start: 20061101, end: 20061120
  3. SODIUM CHLORIDE [Concomitant]
  4. CAFFEINE [Concomitant]
  5. SODIUM BICARBONATE [Concomitant]

REACTIONS (2)
  - HYDROCEPHALUS [None]
  - INTRAVENTRICULAR HAEMORRHAGE NEONATAL [None]
